FAERS Safety Report 9767787 (Version 3)
Quarter: 2014Q1

REPORT INFORMATION
  Report Type: Report from Study
  Country: DE (occurrence: DE)
  Receive Date: 20131217
  Receipt Date: 20140211
  Transmission Date: 20141002
  Serious: Yes (Other)
  Sender: FDA-Public Use
  Company Number: DE-PFIZER INC-2013356146

PATIENT
  Age: 59 Year
  Sex: Female
  Weight: 62 kg

DRUGS (3)
  1. EXEMESTANE [Suspect]
     Indication: BREAST CANCER FEMALE
     Dosage: 25 MG, 1X/DAY
     Route: 048
     Dates: start: 20130405, end: 20130512
  2. AFINITOR [Suspect]
     Indication: BREAST CANCER FEMALE
     Dosage: 10 MG, 1X/DAY
     Route: 048
     Dates: start: 20130405, end: 20130425
  3. AFINITOR [Suspect]
     Dosage: 5 MG, 1X/DAY
     Route: 048
     Dates: start: 20130506, end: 20130512

REACTIONS (1)
  - Transaminases increased [Recovered/Resolved]
